FAERS Safety Report 24027941 (Version 1)
Quarter: 2024Q2

REPORT INFORMATION
  Report Type: Spontaneous
  Country: GB (occurrence: GB)
  Receive Date: 20240628
  Receipt Date: 20240628
  Transmission Date: 20240716
  Serious: Yes (Other)
  Sender: FDA-Public Use
  Company Number: GB-MYLANLABS-2024M1054527

PATIENT
  Sex: Female

DRUGS (2)
  1. OLANZAPINE [Suspect]
     Active Substance: OLANZAPINE
     Indication: Product used for unknown indication
     Dates: start: 200105
  2. OLANZAPINE [Suspect]
     Active Substance: OLANZAPINE
     Indication: Product used for unknown indication
     Dosage: 40 MILLIGRAM

REACTIONS (5)
  - Psychotic disorder [Unknown]
  - Delusion [Unknown]
  - Therapeutic response decreased [Unknown]
  - Emotional distress [Unknown]
  - Disturbance in attention [Unknown]
